FAERS Safety Report 25500741 (Version 1)
Quarter: 2025Q3

REPORT INFORMATION
  Report Type: Spontaneous
  Country: IN (occurrence: IN)
  Receive Date: 20250701
  Receipt Date: 20250701
  Transmission Date: 20251020
  Serious: Yes (Other)
  Sender: ADMA BIOLOGICS
  Company Number: IN-ADMA BIOLOGICS INC.-IN-2025ADM000205

PATIENT
  Age: 2 Year
  Sex: Female

DRUGS (1)
  1. HUMAN IMMUNOGLOBULIN G [Suspect]
     Active Substance: HUMAN IMMUNOGLOBULIN G
     Indication: Thrombocytopenia
     Route: 042

REACTIONS (3)
  - Kounis syndrome [Recovering/Resolving]
  - Anaphylactic reaction [Unknown]
  - Off label use [Unknown]
